FAERS Safety Report 24588576 (Version 2)
Quarter: 2024Q4

REPORT INFORMATION
  Report Type: Spontaneous
  Country: US (occurrence: US)
  Receive Date: 20241107
  Receipt Date: 20241122
  Transmission Date: 20250114
  Serious: Yes (Hospitalization)
  Sender: TEVA
  Company Number: US-TEVA-VS-3260744

PATIENT
  Age: 48 Year
  Sex: Male

DRUGS (6)
  1. GLATIRAMER ACETATE [Suspect]
     Active Substance: GLATIRAMER ACETATE
     Indication: Multiple sclerosis
     Route: 058
  2. DIMETHYL FUMARATE [Suspect]
     Active Substance: DIMETHYL FUMARATE
     Indication: Multiple sclerosis
     Route: 048
  3. FINGOLIMOD [Suspect]
     Active Substance: FINGOLIMOD
     Indication: Multiple sclerosis
     Route: 048
     Dates: start: 201501
  4. ELASOMERAN [Suspect]
     Active Substance: ELASOMERAN
     Indication: COVID-19 immunisation
     Route: 065
     Dates: start: 202103, end: 202103
  5. ELASOMERAN [Suspect]
     Active Substance: ELASOMERAN
     Indication: COVID-19 immunisation
     Route: 065
     Dates: start: 202104, end: 202104
  6. ELASOMERAN [Suspect]
     Active Substance: ELASOMERAN
     Indication: COVID-19 immunisation
     Route: 065
     Dates: start: 202109, end: 202109

REACTIONS (5)
  - Fatigue [Recovered/Resolved]
  - Histoplasmosis disseminated [Recovered/Resolved]
  - Pulmonary histoplasmosis [Recovered/Resolved]
  - Lymphopenia [Recovered/Resolved]
  - Hypercalcaemia [Recovered/Resolved]
